FAERS Safety Report 10674083 (Version 2)
Quarter: 2015Q1

REPORT INFORMATION
  Report Type: Spontaneous
  Country: US (occurrence: None)
  Receive Date: 20141222
  Receipt Date: 20150309
  Transmission Date: 20150720
  Serious: Yes (Other)
  Sender: FDA-Public Use
  Company Number: ADR-2014-02374

PATIENT

DRUGS (1)
  1. BACLOFEN. [Suspect]
     Active Substance: BACLOFEN
     Indication: MUSCLE SPASTICITY
     Dosage: 790MCG/DAY (MEAN DOSE)

REACTIONS (2)
  - Hallucinations, mixed [None]
  - Delusion [None]

NARRATIVE: CASE EVENT DATE: 20140101
